FAERS Safety Report 18583129 (Version 2)
Quarter: 2021Q1

REPORT INFORMATION
  Report Type: Spontaneous
  Country: US (occurrence: US)
  Receive Date: 20201206
  Receipt Date: 20210330
  Transmission Date: 20210419
  Serious: No
  Sender: FDA-Public Use
  Company Number: US-LUPIN PHARMACEUTICALS INC.-2020-09453

PATIENT
  Sex: Female
  Weight: 108.84 kg

DRUGS (2)
  1. PHENELZINE TABLET [Suspect]
     Active Substance: PHENELZINE
     Indication: DEPRESSION
     Dosage: 6 DOSAGE FORM
     Route: 065
  2. PHENELZINE TABLET [Suspect]
     Active Substance: PHENELZINE
     Dosage: 7 DOSAGE FORM
     Route: 065

REACTIONS (1)
  - Drug ineffective [Unknown]
